FAERS Safety Report 7249069-X (Version None)
Quarter: 2011Q1

REPORT INFORMATION
  Report Type: 
  Country: None (occurrence: None)
  Receive Date: 20110128
  Receipt Date: 20100914
  Transmission Date: 20110831
  Serious: Yes (Hospitalization, Other)
  Sender: FDA-Public Use
  Company Number: US-BAYER-201023403NA

PATIENT
  Sex: Female
  Weight: 72.727 kg

DRUGS (5)
  1. YAZ [Suspect]
     Indication: CONTRACEPTION
     Route: 048
     Dates: start: 20070801, end: 20100201
  2. YASMIN [Suspect]
     Indication: PRODUCT USED FOR UNKNOWN INDICATION
     Route: 048
     Dates: start: 20070801, end: 20100201
  3. YAZ [Suspect]
     Indication: PREMENSTRUAL SYNDROME
  4. MIDOL MENSTRUAL COMPLETE FORMULA [Concomitant]
  5. ALBUTEROL INHALER [Concomitant]
     Route: 055
     Dates: start: 20080101

REACTIONS (5)
  - VOMITING [None]
  - NAUSEA [None]
  - CHOLECYSTITIS [None]
  - BILIARY DYSKINESIA [None]
  - CHEST PAIN [None]
